FAERS Safety Report 4285946-X (Version None)
Quarter: 2004Q1

REPORT INFORMATION
  Report Type: 
  Country: None (occurrence: None)
  Receive Date: 20040203
  Receipt Date: 20021221
  Transmission Date: 20041129
  Serious: Yes (Hospitalization, Other)
  Sender: FDA-Public Use
  Company Number: KII-2002-0006992

PATIENT
  Age: 59 Year
  Sex: Female

DRUGS (3)
  1. MORPHINE SULFATE [Suspect]
  2. ACETYLSALICYLIC ACID SRT [Suspect]
  3. BARBITURATES () [Suspect]

REACTIONS (17)
  - AGITATION [None]
  - BLOOD CALCIUM ABNORMAL [None]
  - BLOOD GLUCOSE ABNORMAL [None]
  - BLOOD POTASSIUM ABNORMAL [None]
  - BLOOD PRESSURE SYSTOLIC INCREASED [None]
  - BODY TEMPERATURE DECREASED [None]
  - CONFUSIONAL STATE [None]
  - COUGH [None]
  - DEPRESSED LEVEL OF CONSCIOUSNESS [None]
  - DYSKINESIA [None]
  - INCREASED BRONCHIAL SECRETION [None]
  - INTENTIONAL OVERDOSE [None]
  - MULTIPLE DRUG OVERDOSE [None]
  - OLIGURIA [None]
  - OXYGEN SATURATION DECREASED [None]
  - PNEUMONIA [None]
  - SEDATION [None]
